FAERS Safety Report 25574036 (Version 2)
Quarter: 2025Q4

REPORT INFORMATION
  Report Type: Report from Study
  Country: US (occurrence: US)
  Receive Date: 20250717
  Receipt Date: 20251211
  Transmission Date: 20260117
  Serious: Yes (Hospitalization, Other)
  Sender: ABBVIE
  Company Number: US-ABBVIE-6374803

PATIENT
  Age: 53 Year
  Sex: Female

DRUGS (12)
  1. RINVOQ [Suspect]
     Active Substance: UPADACITINIB
     Indication: Psoriatic arthropathy
     Route: 048
     Dates: start: 20240201
  2. RINVOQ [Suspect]
     Active Substance: UPADACITINIB
     Indication: Psoriatic arthropathy
     Route: 048
     Dates: start: 20250315, end: 202507
  3. RINVOQ [Suspect]
     Active Substance: UPADACITINIB
     Indication: Psoriatic arthropathy
     Route: 048
     Dates: start: 20250705, end: 20251019
  4. RINVOQ [Suspect]
     Active Substance: UPADACITINIB
     Indication: Psoriatic arthropathy
     Route: 048
     Dates: start: 20251111
  5. CHLORTHALIDONE [Concomitant]
     Active Substance: CHLORTHALIDONE
     Indication: Diuretic therapy
     Dates: start: 20210201
  6. METOPROLOL [Concomitant]
     Active Substance: METOPROLOL
     Indication: Liver disorder
     Dates: start: 20220101
  7. QUETIAPINE [Concomitant]
     Active Substance: QUETIAPINE
     Indication: Sleep disorder
     Dates: start: 20250101
  8. CYCLOBENZAPRINE [Concomitant]
     Active Substance: CYCLOBENZAPRINE
     Indication: Skeletal injury
     Dates: start: 20250215
  9. JARDIANCE [Concomitant]
     Active Substance: EMPAGLIFLOZIN
     Indication: Liver disorder
     Dates: start: 20240501
  10. ATORVASTATIN [Concomitant]
     Active Substance: ATORVASTATIN
     Indication: Blood cholesterol
     Dates: start: 20210201
  11. FOLIC ACID [Concomitant]
     Active Substance: FOLIC ACID
     Indication: Adverse drug reaction
     Dates: start: 20220301
  12. POTASSIUM [Concomitant]
     Active Substance: POTASSIUM
     Indication: Mineral supplementation
     Dates: start: 20180301

REACTIONS (7)
  - Impaired gastric emptying [Not Recovered/Not Resolved]
  - Gastrointestinal disorder [Unknown]
  - Diabetes mellitus [Unknown]
  - Hot flush [Unknown]
  - Spinal operation [Unknown]
  - Vomiting [Unknown]
  - Skin lesion [Unknown]

NARRATIVE: CASE EVENT DATE: 20250101
